FAERS Safety Report 4873411-8 (Version None)
Quarter: 2006Q1

REPORT INFORMATION
  Report Type: 
  Country: None (occurrence: None)
  Receive Date: 20060105
  Receipt Date: 20051213
  Transmission Date: 20060701
  Serious: Yes (Other)
  Sender: FDA-Public Use
  Company Number: DE-ABBOTT-05P-062-0320347-00

PATIENT
  Age: 49 Year
  Sex: Female
  Weight: 60 kg

DRUGS (24)
  1. ULTIVA [Suspect]
     Indication: ANAESTHESIA
     Dosage: BOLUS
     Route: 042
  2. ULTIVA [Suspect]
     Dosage: CONTINUOUS INFUSION
     Route: 042
  3. ULTIVA [Suspect]
     Dosage: AFTER SKIN INCISION
     Route: 042
  4. ULTIVA [Suspect]
     Route: 042
  5. ULTIVA [Suspect]
     Route: 042
  6. ULTIVA [Suspect]
     Route: 042
  7. ULTIVA [Suspect]
     Route: 042
  8. ULTIVA [Suspect]
     Route: 042
  9. ULTIVA [Suspect]
     Route: 042
  10. ULTIVA [Suspect]
     Route: 042
  11. PROPOFOL [Suspect]
     Indication: ANAESTHESIA
     Dosage: BOLUS
     Route: 042
  12. PROPOFOL [Suspect]
     Dosage: CONTINUOUS INFUSION
     Route: 042
  13. PROPOFOL [Suspect]
     Dosage: AFTER SKIN INCISION
     Route: 042
  14. PROPOFOL [Suspect]
     Dosage: CONTINUOUS INFUSION
     Route: 042
  15. PROPOFOL [Suspect]
     Route: 050
  16. PROPOFOL [Suspect]
     Dosage: CONTINOUS INFUSION
     Route: 042
  17. PROPOFOL [Suspect]
     Dosage: CONTINUOUS INFUSION
     Route: 042
  18. FLUNITRAZEPAM [Concomitant]
     Indication: PREMEDICATION
  19. ATROPINE SULFATE [Concomitant]
     Indication: DRUG USE FOR UNKNOWN INDICATION
  20. OXYGEN [Concomitant]
     Indication: OXYGEN SUPPLEMENTATION
  21. NIMBEX [Concomitant]
     Indication: DRUG USE FOR UNKNOWN INDICATION
  22. NIMBEX [Concomitant]
  23. MEZLOCILLIN [Concomitant]
     Indication: ANTIBIOTIC PROPHYLAXIS
  24. METRONIDAZOLE [Concomitant]
     Indication: ANTIBIOTIC PROPHYLAXIS

REACTIONS (3)
  - HEART RATE INCREASED [None]
  - PAIN [None]
  - UNWANTED AWARENESS DURING ANAESTHESIA [None]
